FAERS Safety Report 11177790 (Version 1)
Quarter: 2015Q2

REPORT INFORMATION
  Report Type: Spontaneous
  Country: US (occurrence: None)
  Receive Date: 20150515
  Receipt Date: 20150515
  Transmission Date: 20150821
  Serious: Yes (Hospitalization, Other)
  Sender: FDA-Public Use
  Company Number: 116006

PATIENT
  Age: 50 Year
  Sex: Female
  Weight: 47.6 kg

DRUGS (4)
  1. VENLAFAXINE [Concomitant]
     Active Substance: VENLAFAXINE HYDROCHLORIDE
  2. ENTACORT (HYDROCORTISONE; MICONAZOLE NITRATE) [Concomitant]
  3. CIMZIA [Suspect]
     Active Substance: CERTOLIZUMAB PEGOL
     Indication: CROHN^S DISEASE
     Route: 058
     Dates: start: 20140224, end: 201403
  4. CIMZIA [Suspect]
     Active Substance: CERTOLIZUMAB PEGOL
     Indication: POUCHITIS
     Route: 058
     Dates: start: 20140224, end: 201403

REACTIONS (6)
  - Fatigue [None]
  - Diarrhoea [None]
  - Pyrexia [None]
  - Clostridium difficile infection [None]
  - Drug ineffective [None]
  - Abdominal pain [None]

NARRATIVE: CASE EVENT DATE: 20140320
